FAERS Safety Report 8760709 (Version 2)
Quarter: 2012Q4

REPORT INFORMATION
  Report Type: 
  Country: US (occurrence: US)
  Receive Date: 20120829
  Receipt Date: 20121211
  Transmission Date: 20130627
  Serious: Yes (Hospitalization, Other)
  Sender: FDA-Public Use
  Company Number: US-ASTELLAS-2012US007265

PATIENT
  Age: 68 Year
  Sex: Female
  Weight: 52 kg

DRUGS (1)
  1. TARCEVA [Suspect]
     Indication: BILE DUCT CANCER
     Dosage: 160 mg, UID/QD
     Route: 048
     Dates: start: 20120613, end: 20120810

REACTIONS (6)
  - Off label use [Unknown]
  - Failure to thrive [Recovered/Resolved]
  - Bradycardia [Recovered/Resolved]
  - Feeling abnormal [Unknown]
  - Localised infection [Unknown]
  - Heart rate decreased [Unknown]
